FAERS Safety Report 4561389-6 (Version None)
Quarter: 2005Q1

REPORT INFORMATION
  Report Type: 
  Country: None (occurrence: None)
  Receive Date: 20050126
  Receipt Date: 20041207
  Transmission Date: 20050727
  Serious: Yes (Life-Threatening, Hospitalization)
  Sender: FDA-Public Use
  Company Number: GB-ROCHE-388391

PATIENT
  Age: 53 Year
  Sex: Male
  Weight: 80.6 kg

DRUGS (5)
  1. CAPECITABINE [Suspect]
     Dosage: CYCLICAL THERAPY:  TWO WEEKS TREATMENT FOLLOWED BY ONE WEEK REST.
     Route: 048
     Dates: start: 20041018, end: 20050111
  2. BLINDED BEVACIZUMAB [Suspect]
     Route: 042
     Dates: start: 20041018, end: 20041230
  3. OXALIPLATIN [Suspect]
     Route: 042
     Dates: start: 20041018, end: 20050111
  4. BENDROFLUAZIDE [Concomitant]
  5. RAMIPRIL [Concomitant]

REACTIONS (1)
  - INTESTINAL PERFORATION [None]
